FAERS Safety Report 4785927-3 (Version None)
Quarter: 2005Q3

REPORT INFORMATION
  Report Type: 
  Country: None (occurrence: None)
  Receive Date: 20050930
  Receipt Date: 20050916
  Transmission Date: 20060218
  Serious: Yes (Hospitalization)
  Sender: FDA-Public Use
  Company Number: FR-2005-017000

PATIENT
  Age: 18 Year
  Sex: Female
  Weight: 63 kg

DRUGS (1)
  1. JASMINE (DROSPIRENONE, ETHINYLESTRADIOL) FILM TABLET [Suspect]
     Indication: ORAL CONTRACEPTION
     Dosage: 1 TAB (S), 21D/28D, ORAL
     Route: 048
     Dates: start: 20041201, end: 20050725

REACTIONS (4)
  - BALANCE DISORDER [None]
  - CONDITION AGGRAVATED [None]
  - FALL [None]
  - MYOCLONIC EPILEPSY [None]
